FAERS Safety Report 18391528 (Version 1)
Quarter: 2020Q4

REPORT INFORMATION
  Report Type: Spontaneous
  Country: US (occurrence: US)
  Receive Date: 20201016
  Receipt Date: 20201016
  Transmission Date: 20210114
  Serious: Yes (Life-Threatening, Hospitalization)
  Sender: FDA-Public Use
  Company Number: US-MYLANLABS-2020M1086452

PATIENT
  Age: 41 Year
  Sex: Female

DRUGS (24)
  1. HEPARIN [Suspect]
     Active Substance: HEPARIN SODIUM
     Dosage: HEPARIN INFUSION DECREASED TO 800 UNITS/HOU..
     Route: 042
     Dates: start: 20181112, end: 20181112
  2. MANNITOL. [Suspect]
     Active Substance: MANNITOL
     Indication: INTRACRANIAL PRESSURE INCREASED
     Route: 065
  3. HEPARIN [Suspect]
     Active Substance: HEPARIN SODIUM
     Dosage: HEPARIN INFUSION RESTARTED AT 800 UNITS/HOUR
     Route: 042
     Dates: start: 20181118
  4. ALTEPLASE. [Suspect]
     Active Substance: ALTEPLASE
     Indication: ANTICOAGULANT THERAPY
     Dosage: RECEIVED 1 DOSE OF INTRA..
  5. SODIUM CHLORIDE. [Suspect]
     Active Substance: SODIUM CHLORIDE
     Indication: INTRACRANIAL PRESSURE INCREASED
     Route: 065
  6. SODIUM CHLORIDE. [Suspect]
     Active Substance: SODIUM CHLORIDE
     Indication: BRAIN OEDEMA
  7. MANNITOL. [Suspect]
     Active Substance: MANNITOL
     Indication: BRAIN OEDEMA
  8. SODIUM CHLORIDE. [Suspect]
     Active Substance: SODIUM CHLORIDE
     Indication: INTRACRANIAL PRESSURE INCREASED
     Route: 065
  9. SODIUM [Suspect]
     Active Substance: SODIUM
     Indication: INTRACRANIAL PRESSURE INCREASED
     Route: 065
  10. SODIUM [Suspect]
     Active Substance: SODIUM
     Indication: BRAIN OEDEMA
  11. HEPARIN [Suspect]
     Active Substance: HEPARIN SODIUM
     Indication: ANTICOAGULANT THERAPY
     Dosage: 1200 UNITS/HOUR
     Route: 042
     Dates: start: 20181109, end: 20181110
  12. HEPARIN [Suspect]
     Active Substance: HEPARIN SODIUM
     Dosage: HEPARIN INFUSION INCREASED TO 1050 UNITS/HOUR
     Route: 042
     Dates: start: 20181112
  13. HEPARIN [Suspect]
     Active Substance: HEPARIN SODIUM
     Dosage: HEPARIN INFUSION INCREASED TO 1300 UNITS/HOUR
     Route: 042
     Dates: start: 20181113, end: 20181113
  14. ETHINYLESTRADIOL [Suspect]
     Active Substance: ETHINYL ESTRADIOL
     Indication: ORAL CONTRACEPTION
     Route: 065
  15. DROSPIRENONE [Suspect]
     Active Substance: DROSPIRENONE
     Indication: ORAL CONTRACEPTION
     Route: 065
  16. HEPARIN [Suspect]
     Active Substance: HEPARIN SODIUM
     Dosage: HEPARIN INFUSION INCREASED TO 1450 UNITS/HOUR
     Route: 042
     Dates: start: 20181113, end: 20181114
  17. ALTEPLASE. [Suspect]
     Active Substance: ALTEPLASE
     Indication: ANTICOAGULANT THERAPY
     Dosage: 10 MILLIGRAM AS A CONTINUOUS INFUSION..
  18. HEPARIN [Suspect]
     Active Substance: HEPARIN SODIUM
     Dosage: HEPARIN INFUSION RESTARTED..
     Route: 042
     Dates: start: 20181110, end: 20181111
  19. NORMAL SALINE [Concomitant]
     Active Substance: SODIUM CHLORIDE
     Indication: VEHICLE SOLUTION USE
     Dosage: 510 MILLILITER AS A CONTINUOUS INFUSION
  20. ACETAZOLAMIDE. [Suspect]
     Active Substance: ACETAZOLAMIDE
     Indication: INTRACRANIAL PRESSURE INCREASED
     Route: 065
  21. ACETAZOLAMIDE. [Suspect]
     Active Substance: ACETAZOLAMIDE
     Indication: BRAIN OEDEMA
  22. SODIUM CHLORIDE. [Suspect]
     Active Substance: SODIUM CHLORIDE
     Indication: BRAIN OEDEMA
  23. HEPARIN [Suspect]
     Active Substance: HEPARIN SODIUM
     Dosage: HEPARIN INFUSION RESTARTED AT 1600 UNITS/HOUR AND DECREASED TO 1450 UNITS/HOUR..
     Route: 042
     Dates: start: 20181114
  24. HEPARIN [Suspect]
     Active Substance: HEPARIN SODIUM
     Dosage: HEPARIN INFUSION INCREASED TO 1600 UNITS/HOUR
     Route: 042
     Dates: start: 20181117, end: 20181118

REACTIONS (8)
  - Bleeding time prolonged [Unknown]
  - Cerebral infarction [Unknown]
  - Intraventricular haemorrhage [Recovering/Resolving]
  - Drug ineffective [Unknown]
  - Brain oedema [Unknown]
  - Cerebral venous sinus thrombosis [Unknown]
  - Hydrocephalus [Unknown]
  - Condition aggravated [Unknown]
